FAERS Safety Report 12428730 (Version 2)
Quarter: 2016Q3

REPORT INFORMATION
  Report Type: Spontaneous
  Country: US (occurrence: US)
  Receive Date: 20160602
  Receipt Date: 20160719
  Transmission Date: 20161109
  Serious: Yes (Hospitalization)
  Sender: FDA-Public Use
  Company Number: US-NOVOPROD-494045

PATIENT
  Age: 62 Year
  Sex: Female
  Weight: 72.56 kg

DRUGS (1)
  1. NOVOLOG [Suspect]
     Active Substance: INSULIN ASPART
     Indication: TYPE 1 DIABETES MELLITUS
     Dosage: SLIDING SCALE
     Route: 058
     Dates: start: 1996

REACTIONS (2)
  - Cerebrovascular accident [Recovered/Resolved with Sequelae]
  - Coma [Recovered/Resolved]

NARRATIVE: CASE EVENT DATE: 201406
